FAERS Safety Report 7595046-9 (Version None)
Quarter: 2011Q3

REPORT INFORMATION
  Report Type: 
  Country: None (occurrence: None)
  Receive Date: 20110707
  Receipt Date: 20110701
  Transmission Date: 20111222
  Serious: Yes (Hospitalization, Other)
  Sender: FDA-Public Use
  Company Number: AR-SANOFI-AVENTIS-2011SA041842

PATIENT
  Age: 14 Year
  Sex: Female

DRUGS (3)
  1. INSULIN [Concomitant]
     Indication: ILL-DEFINED DISORDER
     Route: 058
  2. SOLOSTAR [Suspect]
     Indication: PRODUCT USED FOR UNKNOWN INDICATION
  3. LANTUS [Suspect]
     Indication: PRODUCT USED FOR UNKNOWN INDICATION
     Route: 058

REACTIONS (4)
  - HYPERGLYCAEMIA [None]
  - MALAISE [None]
  - FEELING ABNORMAL [None]
  - NAUSEA [None]
